FAERS Safety Report 7958400-9 (Version None)
Quarter: 2011Q4

REPORT INFORMATION
  Report Type: 
  Country: None (occurrence: None)
  Receive Date: 20111205
  Receipt Date: 20111129
  Transmission Date: 20120403
  Serious: Yes (Disabling)
  Sender: FDA-Public Use
  Company Number: FR-MERCK-1112FRA00002

PATIENT
  Age: 71 Year
  Sex: Female

DRUGS (2)
  1. FOSAMAX PLUS D [Suspect]
     Route: 048
     Dates: start: 20080101
  2. HOMEOPATHIC MEDICATIONS (UNSPECIFIED) [Concomitant]
     Route: 048

REACTIONS (2)
  - HAND FRACTURE [None]
  - OESOPHAGEAL PAIN [None]
